FAERS Safety Report 9156562 (Version 1)
Quarter: 2013Q1

REPORT INFORMATION
  Report Type: Spontaneous
  Country: US (occurrence: None)
  Receive Date: 20130308
  Receipt Date: 20130308
  Transmission Date: 20140127
  Serious: Yes (Other)
  Sender: FDA-Public Use
  Company Number: None

PATIENT
  Age: 48 Year
  Sex: Male
  Weight: 201.4 kg

DRUGS (4)
  1. NEURONTIN [Suspect]
     Indication: PAIN
     Dosage: 3 CAPSULES  3 TIMES A DAY PO
     Route: 048
     Dates: start: 20130118, end: 20130216
  2. IBUPROFEN [Concomitant]
  3. BACLOFEN [Concomitant]
  4. PERCOCET [Concomitant]

REACTIONS (1)
  - Hallucination [None]
